FAERS Safety Report 6150166-0 (Version None)
Quarter: 2009Q2

REPORT INFORMATION
  Report Type: 
  Country: None (occurrence: None)
  Receive Date: 20090409
  Receipt Date: 20090408
  Transmission Date: 20091009
  Serious: Yes (Hospitalization)
  Sender: FDA-Public Use
  Company Number: US-PFIZER INC-2008088709

PATIENT
  Sex: Male
  Weight: 110.3 kg

DRUGS (15)
  1. MARAVIROC [Suspect]
     Indication: HIV INFECTION
     Dosage: 150 MG, 2X/DAY
     Route: 048
     Dates: start: 20060915
  2. GEMFIBROZIL [Concomitant]
     Route: 048
     Dates: start: 20080204
  3. ENALAPRIL [Concomitant]
     Route: 048
     Dates: start: 20070717
  4. OS-CAL [Concomitant]
     Route: 048
     Dates: start: 20070717
  5. GLUCOPHAGE [Concomitant]
     Route: 048
     Dates: start: 20070215
  6. ASPIRIN [Concomitant]
     Route: 048
     Dates: start: 20061012
  7. CENTRUM [Concomitant]
     Route: 048
     Dates: start: 20040412
  8. WELLBUTRIN XL [Concomitant]
     Route: 048
     Dates: start: 20080502
  9. DURAGESIC-100 [Concomitant]
     Route: 061
     Dates: start: 20070719
  10. AMBIEN [Concomitant]
     Route: 048
     Dates: start: 20070426
  11. CIALIS [Concomitant]
     Route: 048
     Dates: start: 20061012
  12. VIREAD [Concomitant]
     Route: 048
     Dates: start: 20060915
  13. EPZICOM [Concomitant]
     Route: 048
     Dates: start: 20060915
  14. REYATAZ [Concomitant]
     Route: 048
     Dates: start: 20060615
  15. NORVIR [Concomitant]
     Route: 048
     Dates: start: 20060915

REACTIONS (1)
  - NERVE ROOT COMPRESSION [None]
